FAERS Safety Report 11922254 (Version 2)
Quarter: 2016Q1

REPORT INFORMATION
  Report Type: Spontaneous
  Country: DE (occurrence: DE)
  Receive Date: 20160115
  Receipt Date: 20160226
  Transmission Date: 20160526
  Serious: Yes (Other)
  Sender: FDA-Public Use
  Company Number: DE-TEVA-625714GER

PATIENT
  Sex: Male

DRUGS (5)
  1. APROVEL [Concomitant]
     Active Substance: IRBESARTAN
     Dosage: 150 MILLIGRAM DAILY; AT HIGH NOON
  2. BUDES AIR [Concomitant]
     Indication: SEASONAL ALLERGY
     Dosage: 1 PUSH AT POLLEN ALLERGY (BIRCH); AT 10:00 A.M.
  3. CETIRIZIN [Interacting]
     Active Substance: CETIRIZINE HYDROCHLORIDE
     Indication: SEASONAL ALLERGY
     Dosage: 1 TABLET PER DAY FROM JANUARY UNTIL MAY; AT 08:00 P.M.
     Route: 048
  4. ASPIRIN. [Concomitant]
     Active Substance: ASPIRIN
     Dosage: 100 MILLIGRAM DAILY; AT 08:00 A.M.
  5. SOTALOL-RATIOPHARM 80 MG [Suspect]
     Active Substance: SOTALOL
     Route: 048

REACTIONS (2)
  - Atrial fibrillation [Not Recovered/Not Resolved]
  - Drug interaction [Unknown]
